FAERS Safety Report 20795263 (Version 1)
Quarter: 2022Q2

REPORT INFORMATION
  Report Type: Spontaneous
  Country: US (occurrence: None)
  Receive Date: 20220505
  Receipt Date: 20220505
  Transmission Date: 20220721
  Serious: Yes (Hospitalization)
  Sender: FDA-Public Use
  Company Number: None

PATIENT
  Age: 25 Year
  Sex: Male
  Weight: 63 kg

DRUGS (1)
  1. .DELTA.8-TETRAHYDROCANNABINOL\HERBALS [Suspect]
     Active Substance: .DELTA.8-TETRAHYDROCANNABINOL\HERBALS
     Indication: Product used for unknown indication
     Dosage: OTHER FREQUENCY : ONCE?OTHER ROUTE : INHALED?
     Route: 055
     Dates: start: 20220503, end: 20220503

REACTIONS (12)
  - Loss of consciousness [None]
  - Fall [None]
  - Hypopnoea [None]
  - Cyanosis [None]
  - Cyanosis [None]
  - Tachycardia [None]
  - Hypoxia [None]
  - Areflexia [None]
  - Bradycardia [None]
  - Somnolence [None]
  - Mydriasis [None]
  - Muscular weakness [None]

NARRATIVE: CASE EVENT DATE: 20220503
